FAERS Safety Report 12346992 (Version 3)
Quarter: 2016Q3

REPORT INFORMATION
  Report Type: Report from Study
  Country: US (occurrence: US)
  Receive Date: 20160509
  Receipt Date: 20160801
  Transmission Date: 20161109
  Serious: No
  Sender: FDA-Public Use
  Company Number: PHEH2016US010948

PATIENT
  Age: 58 Year
  Sex: Female

DRUGS (1)
  1. COSENTYX [Suspect]
     Active Substance: SECUKINUMAB
     Indication: PSORIASIS
     Dosage: 300 MG, QW
     Route: 058
     Dates: start: 20160428, end: 20160526

REACTIONS (5)
  - Psoriasis [Not Recovered/Not Resolved]
  - Feeling cold [Unknown]
  - Dysphonia [Not Recovered/Not Resolved]
  - Tremor [Unknown]
  - Oral herpes [Unknown]

NARRATIVE: CASE EVENT DATE: 20160429
